FAERS Safety Report 5383866-0 (Version None)
Quarter: 2007Q3

REPORT INFORMATION
  Report Type: 
  Country: None (occurrence: None)
  Receive Date: 20070711
  Receipt Date: 20070702
  Transmission Date: 20080115
  Serious: Yes (Other)
  Sender: FDA-Public Use
  Company Number: US-JNJFOC-20070500522

PATIENT
  Sex: Female
  Weight: 64.41 kg

DRUGS (9)
  1. DURAGESIC-100 [Suspect]
     Indication: PAIN
     Route: 062
  2. ZANAFLEX [Concomitant]
     Indication: MUSCLE RELAXANT THERAPY
     Route: 048
  3. WELLBUTRIN [Concomitant]
     Indication: DEPRESSION
     Route: 048
  4. NEXIUM [Concomitant]
     Indication: GASTROINTESTINAL DISORDER
     Route: 048
  5. TRAZODONE HCL [Concomitant]
     Indication: SLEEP DISORDER
     Route: 048
  6. ESTRATEST [Concomitant]
     Indication: HORMONE REPLACEMENT THERAPY
     Route: 048
  7. TOPAMAX [Concomitant]
     Indication: PAIN
     Route: 048
  8. PROTONIX [Concomitant]
     Indication: GASTROINTESTINAL DISORDER
     Route: 048
  9. PHENERGAN [Concomitant]
     Indication: NAUSEA
     Route: 048

REACTIONS (10)
  - APPLICATION SITE ERYTHEMA [None]
  - APPLICATION SITE PRURITUS [None]
  - APPLICATION SITE RASH [None]
  - APPLICATION SITE ULCER [None]
  - ARTHRALGIA [None]
  - BREAKTHROUGH PAIN [None]
  - DERMATITIS CONTACT [None]
  - DYSPNOEA [None]
  - NEURALGIA [None]
  - OSTEOPOROSIS [None]
